FAERS Safety Report 8926758 (Version 1)
Quarter: 2012Q4

REPORT INFORMATION
  Report Type: 
  Country: US (occurrence: US)
  Receive Date: 20121127
  Receipt Date: 20121127
  Transmission Date: 20130627
  Serious: Yes (Hospitalization)
  Sender: FDA-Public Use
  Company Number: US-PFIZER INC-2012268832

PATIENT
  Age: 51 Year
  Sex: Male
  Weight: 106 kg

DRUGS (2)
  1. CHANTIX [Suspect]
     Dosage: 0.5 mg, Daily
     Route: 048
     Dates: start: 201209, end: 2012
  2. CHANTIX [Suspect]
     Dosage: 1 mg, 2x/day
     Route: 048
     Dates: start: 2012, end: 201210

REACTIONS (1)
  - Heart rate increased [Recovering/Resolving]
